FAERS Safety Report 4636428-4 (Version None)
Quarter: 2005Q2

REPORT INFORMATION
  Report Type: 
  Country: None (occurrence: None)
  Receive Date: 20050415
  Receipt Date: 20050405
  Transmission Date: 20051028
  Serious: Yes (Other)
  Sender: FDA-Public Use
  Company Number: CA-JNJFOC-20050401968

PATIENT
  Age: 88 Year
  Sex: Female

DRUGS (10)
  1. DURAGESIC-100 [Suspect]
     Route: 062
  2. DURAGESIC-100 [Suspect]
     Route: 062
  3. DURAGESIC-100 [Suspect]
     Route: 062
  4. DURAGESIC-100 [Suspect]
     Indication: DRUG USE FOR UNKNOWN INDICATION
     Route: 062
  5. LOPID [Concomitant]
  6. CARDIZEM [Concomitant]
  7. NEXIUM [Concomitant]
  8. XALATAN EYE DROP [Concomitant]
     Route: 047
  9. AMITRIPTYLINE HCL TAB [Concomitant]
  10. NEURONTIN [Concomitant]

REACTIONS (2)
  - ARRHYTHMIA [None]
  - BLOOD PRESSURE INCREASED [None]
